FAERS Safety Report 7973229-3 (Version None)
Quarter: 2011Q4

REPORT INFORMATION
  Report Type: 
  Country: None (occurrence: None)
  Receive Date: 20111213
  Receipt Date: 20111206
  Transmission Date: 20120403
  Serious: Yes (Other)
  Sender: FDA-Public Use
  Company Number: PHHY2011AR106709

PATIENT
  Sex: Female

DRUGS (2)
  1. DIOVAN [Suspect]
     Indication: HYPERTENSION
     Dosage: 1 DF, DAILY (80 MG)
  2. DIOVAN [Suspect]
     Dosage: 1 DF, DAILY (160 MG)

REACTIONS (3)
  - HYPOKINESIA [None]
  - CEREBROVASCULAR ACCIDENT [None]
  - BLOOD PRESSURE INCREASED [None]
